FAERS Safety Report 5477537-X (Version None)
Quarter: 2007Q4

REPORT INFORMATION
  Report Type: 
  Country: None (occurrence: None)
  Receive Date: 20071002
  Receipt Date: 20070918
  Transmission Date: 20080405
  Serious: Yes (Hospitalization)
  Sender: FDA-Public Use
  Company Number: S07-AUS-05208-01

PATIENT
  Sex: Female

DRUGS (1)
  1. ESCITALOPRAM [Suspect]
     Indication: DEPRESSION
     Dosage: 10 MG QD PO
     Route: 048
     Dates: start: 20070915, end: 20070916

REACTIONS (4)
  - DYSURIA [None]
  - FEELING COLD [None]
  - HOT FLUSH [None]
  - VISION BLURRED [None]
